FAERS Safety Report 5118649-X (Version None)
Quarter: 2006Q3

REPORT INFORMATION
  Report Type: 
  Country: None (occurrence: None)
  Receive Date: 20060927
  Receipt Date: 20060913
  Transmission Date: 20061208
  Serious: Yes (Hospitalization)
  Sender: FDA-Public Use
  Company Number: 221923

PATIENT
  Age: 63 Year
  Sex: Male
  Weight: 85 kg

DRUGS (12)
  1. MABTHERA (RITUXIMAB) CONC FOR SOLUTION FOR INFUSION [Suspect]
     Indication: CHRONIC LYMPHOCYTIC LEUKAEMIA
     Dosage: 787 MG
     Dates: start: 20060124, end: 20060124
  2. CYCLOPHOSPHAMIDE [Suspect]
     Indication: CHRONIC LYMPHOCYTIC LEUKAEMIA
     Dosage: 525 MG, INTRAVENOUS
     Route: 042
     Dates: start: 20060125, end: 20060127
  3. FLUDARABINE PHOSPHATE [Suspect]
     Indication: CHRONIC LYMPHOCYTIC LEUKAEMIA
     Dosage: 52.5 MG, INTRAVENOUS
     Route: 042
     Dates: start: 20060125, end: 20060127
  4. ASPIRIN [Concomitant]
  5. DIOVAN HCT [Concomitant]
  6. MORPHINE [Concomitant]
  7. ACETAMINOPHEN [Concomitant]
  8. PREDNISONE TAB [Concomitant]
  9. ALLOPURINOL [Concomitant]
  10. COTRIM FORTE (SULFAMETHOXAZOLE, TRIMETHOPRIM) [Concomitant]
  11. PANTOPRAZOLE SODIUM [Concomitant]
  12. MOXIFLOXACIN (MOXIFLOXICAN) [Concomitant]

REACTIONS (9)
  - BIOPSY SKIN ABNORMAL [None]
  - GRANULOMA [None]
  - HAEMOLYTIC ANAEMIA [None]
  - HAEMORRHAGE SUBCUTANEOUS [None]
  - PANCYTOPENIA [None]
  - PNEUMONIA [None]
  - SEPSIS [None]
  - SOFT TISSUE NECROSIS [None]
  - SUBCUTANEOUS ABSCESS [None]
